APPROVED DRUG PRODUCT: LIPOSYN III 30%
Active Ingredient: SOYBEAN OIL
Strength: 30%
Dosage Form/Route: INJECTABLE;INJECTION
Application: N020181 | Product #001
Applicant: HOSPIRA INC
Approved: Jan 13, 1998 | RLD: No | RS: No | Type: DISCN